FAERS Safety Report 23099109 (Version 2)
Quarter: 2023Q4

REPORT INFORMATION
  Report Type: Spontaneous
  Country: LU (occurrence: LU)
  Receive Date: 20231024
  Receipt Date: 20231111
  Transmission Date: 20240109
  Serious: Yes (Other)
  Sender: FDA-Public Use
  Company Number: None

PATIENT
  Age: 78 Year
  Sex: Male
  Weight: 105 kg

DRUGS (5)
  1. OXALIPLATIN [Suspect]
     Active Substance: OXALIPLATIN
     Indication: Metastases to gastrointestinal tract
     Dosage: 170 MG, QCY (3RD COURSE OF CHEMOTHERAPY85 MG/M2)(CYCLICAL)
     Route: 042
     Dates: start: 20230928, end: 20230928
  2. FLUOROURACIL [Suspect]
     Active Substance: FLUOROURACIL
     Indication: Metastases to gastrointestinal tract
     Dosage: 400 MG, QCY (3RD COURSE OF CHEMOTHERAPY50% 200 MG/M2)
     Route: 042
     Dates: start: 20230928, end: 20230928
  3. LEVOLEUCOVORIN CALCIUM [Suspect]
     Active Substance: LEVOLEUCOVORIN CALCIUM
     Indication: Chemotherapy toxicity attenuation
     Dosage: 400 MG, TOTAL (200 MG/M2)
     Route: 042
     Dates: start: 20230928, end: 20230928
  4. DEXAMETHASONE [Concomitant]
     Active Substance: DEXAMETHASONE
     Indication: Premedication
     Dosage: 8 MG, 4X
     Route: 042
     Dates: start: 20230928, end: 20230928
  5. ONDANSETRON [Concomitant]
     Active Substance: ONDANSETRON
     Indication: Premedication
     Dosage: 8 MG, 4X
     Route: 042
     Dates: start: 20230928, end: 20230928

REACTIONS (2)
  - Chills [Recovered/Resolved]
  - Pyrexia [Recovered/Resolved]

NARRATIVE: CASE EVENT DATE: 20230928
